FAERS Safety Report 10654251 (Version 1)
Quarter: 2014Q4

REPORT INFORMATION
  Report Type: Spontaneous
  Country: US (occurrence: None)
  Receive Date: 20141215
  Receipt Date: 20141215
  Transmission Date: 20150529
  Serious: Yes (Hospitalization)
  Sender: FDA-Public Use
  Company Number: None

PATIENT
  Age: 66 Year
  Sex: Male
  Weight: 80 kg

DRUGS (1)
  1. LISINOPRIL. [Suspect]
     Active Substance: LISINOPRIL
     Indication: HYPERTENSION
     Route: 048
     Dates: start: 20140429, end: 20141117

REACTIONS (5)
  - Abdominal discomfort [None]
  - Angioedema [None]
  - Back pain [None]
  - Urinary tract infection [None]
  - Treatment noncompliance [None]

NARRATIVE: CASE EVENT DATE: 20141117
